FAERS Safety Report 14955648 (Version 1)
Quarter: 2018Q2

REPORT INFORMATION
  Report Type: Spontaneous
  Country: ES (occurrence: ES)
  Receive Date: 20180531
  Receipt Date: 20180531
  Transmission Date: 20180711
  Serious: Yes (Other)
  Sender: FDA-Public Use
  Company Number: ES-AUROBINDO-AUR-APL-2018-004958

PATIENT
  Age: 65 Year
  Sex: Male

DRUGS (1)
  1. SIMVASTATIN. [Suspect]
     Active Substance: SIMVASTATIN
     Indication: HYPERCHOLESTEROLAEMIA
     Dosage: 10 MG, DAILY
     Route: 048
     Dates: start: 2017, end: 2017

REACTIONS (1)
  - Urinary retention [Recovered/Resolved]

NARRATIVE: CASE EVENT DATE: 20170316
